FAERS Safety Report 6690327-5 (Version None)
Quarter: 2010Q2

REPORT INFORMATION
  Report Type: 
  Country: None (occurrence: None)
  Receive Date: 20100421
  Receipt Date: 20100416
  Transmission Date: 20101027
  Serious: Yes (Other)
  Sender: FDA-Public Use
  Company Number: B0644157A

PATIENT
  Sex: Female

DRUGS (4)
  1. ALLI [Suspect]
     Dosage: 1CAP TWICE PER DAY
     Route: 065
     Dates: start: 20100201, end: 20100322
  2. VENTOLIN [Concomitant]
  3. OMEPRAZOLE [Concomitant]
  4. BENDROFLUAZIDE [Concomitant]

REACTIONS (8)
  - ABDOMINAL PAIN [None]
  - BLOOD BILIRUBIN INCREASED [None]
  - CHROMATURIA [None]
  - DIARRHOEA [None]
  - EATING DISORDER [None]
  - FOOD AVERSION [None]
  - FOOD CRAVING [None]
  - NAUSEA [None]
